APPROVED DRUG PRODUCT: METRONIDAZOLE
Active Ingredient: METRONIDAZOLE
Strength: 250MG
Dosage Form/Route: TABLET;ORAL
Application: A209096 | Product #001
Applicant: LUPIN LTD
Approved: Sep 12, 2017 | RLD: No | RS: No | Type: DISCN